FAERS Safety Report 5081739-4 (Version None)
Quarter: 2006Q3

REPORT INFORMATION
  Report Type: 
  Country: None (occurrence: None)
  Receive Date: 20060816
  Receipt Date: 20060808
  Transmission Date: 20061208
  Serious: Yes (Other)
  Sender: FDA-Public Use
  Company Number: 2006SE04375

PATIENT
  Age: 3 Year
  Sex: Male

DRUGS (1)
  1. NEXIUM [Suspect]
     Dosage: 2-3 TABLETS
     Route: 048

REACTIONS (1)
  - ACCIDENTAL OVERDOSE [None]
